FAERS Safety Report 11239837 (Version 2)
Quarter: 2016Q3

REPORT INFORMATION
  Report Type: Spontaneous
  Country: US (occurrence: US)
  Receive Date: 20150706
  Receipt Date: 20160920
  Transmission Date: 20161109
  Serious: No
  Sender: FDA-Public Use
  Company Number: US-PFIZER INC-2015218280

PATIENT
  Age: 45 Year
  Sex: Male
  Weight: 98 kg

DRUGS (25)
  1. LISINOPRIL. [Concomitant]
     Active Substance: LISINOPRIL
     Dosage: 20 MG, 1X/DAY
     Route: 048
  2. MIRTAZAPINE. [Concomitant]
     Active Substance: MIRTAZAPINE
     Dosage: 45 MG, 1X/DAY, (1 TABLET EVEY BED TIME)
     Route: 048
  3. REYATAZ [Concomitant]
     Active Substance: ATAZANAVIR SULFATE
     Dosage: 300 MG, DAILY (WITH FOOD)
     Route: 048
  4. REMERON [Concomitant]
     Active Substance: MIRTAZAPINE
     Dosage: 45 MG, DAILY
     Route: 060
  5. VIAGRA [Suspect]
     Active Substance: SILDENAFIL CITRATE
     Indication: SEXUAL DYSFUNCTION
  6. CYCLOBENZAPRINE [Concomitant]
     Active Substance: CYCLOBENZAPRINE
     Dosage: 10 MG, DAILY (2-3 TIMES EVERY DAY)
     Route: 048
  7. NORVIR [Concomitant]
     Active Substance: RITONAVIR
     Dosage: 100 MG, DAILY (TAKE 1 TABLET)
     Route: 048
  8. CELEXA [Concomitant]
     Active Substance: CITALOPRAM HYDROBROMIDE
     Dosage: 40 MG, DAILY
     Route: 048
  9. ABILIFY [Concomitant]
     Active Substance: ARIPIPRAZOLE
     Dosage: 10 MG, DAILY, (TAKE 1 TABLET)
     Route: 048
  10. NAPROXEN. [Concomitant]
     Active Substance: NAPROXEN
     Dosage: 500 MG, 2X/DAY (WITH FOOD)
     Route: 048
  11. CIALIS [Suspect]
     Active Substance: TADALAFIL
     Indication: ERECTILE DYSFUNCTION
     Dosage: 5 MG, DAILY
  12. KETOTIFEN [Concomitant]
     Active Substance: KETOTIFEN
     Dosage: 1 GTT, 2X/DAY (OPHTH SOLN 5 ML)
     Route: 047
  13. TRAZODONE [Concomitant]
     Active Substance: TRAZODONE HYDROCHLORIDE
     Dosage: 100 MG, 1X/DAY, (BEDTIME AFTER MELS)
     Route: 048
  14. HALOPERIDOL. [Concomitant]
     Active Substance: HALOPERIDOL
     Dosage: 10 MG, 3X/DAY
     Route: 048
  15. METFORMIN [Concomitant]
     Active Substance: METFORMIN HYDROCHLORIDE
     Dosage: 500 MG, 2X/DAY, (EVERY MORNING AND EVENING WITH MEAL)
     Route: 048
  16. COLACE [Concomitant]
     Active Substance: DOCUSATE SODIUM
     Dosage: 100 MG, 2X/DAY, (TAKE 1 CAPSULE)
     Route: 048
  17. RANITIDINE. [Concomitant]
     Active Substance: RANITIDINE
     Dosage: 150 MG, 2X/DAY
     Route: 048
  18. ACETAMINOPHEN. [Concomitant]
     Active Substance: ACETAMINOPHEN
     Dosage: 1000 MG, AS NEEDED, (500 MG, TAKE 2 TABLET EVERY 8 HOURS)
     Route: 048
  19. CETIRIZINE [Concomitant]
     Active Substance: CETIRIZINE HYDROCHLORIDE
     Dosage: 10 MG, DAILY
     Route: 048
  20. TRUVADA [Concomitant]
     Active Substance: EMTRICITABINE\TENOFOVIR DISOPROXIL FUMARATE
     Dosage: UNK, DAILY (200 MG- 300 MG TABLET)
     Route: 048
  21. FLUTICASONE [Concomitant]
     Active Substance: FLUTICASONE\FLUTICASONE PROPIONATE
     Dosage: UNK, 50 MCG/ACTUATION (SPRAY 2 SPRAY BY INTRANASAL EVERY DAY FOR 5 DAYS IN EACH NOSTRIL)
     Route: 045
  22. SODIUM CHLORIDE. [Concomitant]
     Active Substance: SODIUM CHLORIDE
     Dosage: UNK UNK, DAILY (2 SPRAY EACH NOSTRIL DAILY)
     Route: 045
  23. VIAGRA [Suspect]
     Active Substance: SILDENAFIL CITRATE
     Indication: ERECTILE DYSFUNCTION
     Dosage: 100 MG, AS NEEDED (100 MG, TABLET, ONE TIME)
     Route: 048
  24. BENZTROPINE [Concomitant]
     Active Substance: BENZTROPINE
     Dosage: 1 MG, 1X/DAY
     Route: 048
  25. PRAVASTATIN. [Concomitant]
     Active Substance: PRAVASTATIN
     Dosage: 20 MG, 1X/DAY
     Route: 048

REACTIONS (2)
  - Drug ineffective [Unknown]
  - Erection increased [Unknown]

NARRATIVE: CASE EVENT DATE: 201502
